FAERS Safety Report 6732109-1 (Version None)
Quarter: 2010Q2

REPORT INFORMATION
  Report Type: 
  Country: None (occurrence: None)
  Receive Date: 20100519
  Receipt Date: 20100510
  Transmission Date: 20101027
  Serious: Yes (Hospitalization)
  Sender: FDA-Public Use
  Company Number: US-PFIZER INC-2010058510

PATIENT
  Age: 7 Year
  Sex: Female

DRUGS (4)
  1. AMLODIPINE BESYLATE [Suspect]
     Dosage: 0.05 MG/KG, 2X/DAY
  2. DIGOXIN [Concomitant]
  3. MONTELUKAST [Concomitant]
  4. METHYLPHENIDATE [Concomitant]

REACTIONS (1)
  - CEREBROVASCULAR ACCIDENT [None]
